FAERS Safety Report 8085555-0 (Version None)
Quarter: 2012Q1

REPORT INFORMATION
  Report Type: 
  Country: None (occurrence: None)
  Receive Date: 20120128
  Receipt Date: 20110512
  Transmission Date: 20120608
  Serious: No
  Sender: FDA-Public Use
  Company Number: US-ABBOTT-11P-163-0714163-00

PATIENT
  Sex: Female
  Weight: 60.836 kg

DRUGS (3)
  1. HUMIRA [Suspect]
     Indication: PSORIATIC ARTHROPATHY
     Route: 058
  2. METHOTREXATE [Concomitant]
     Indication: PSORIATIC ARTHROPATHY
  3. SYNTHROID [Concomitant]
     Indication: HYPOTHYROIDISM

REACTIONS (6)
  - CHILLS [None]
  - UPPER RESPIRATORY TRACT INFECTION [None]
  - SPUTUM DISCOLOURED [None]
  - PRODUCTIVE COUGH [None]
  - BRONCHITIS [None]
  - PYREXIA [None]
